FAERS Safety Report 6419739-1 (Version None)
Quarter: 2009Q4

REPORT INFORMATION
  Report Type: 
  Country: None (occurrence: None)
  Receive Date: 20091029
  Receipt Date: 20091022
  Transmission Date: 20100525
  Serious: Yes (Other)
  Sender: FDA-Public Use
  Company Number: ES-AVENTIS-200922015GDDC

PATIENT
  Age: 10 Year
  Sex: Male

DRUGS (1)
  1. DESMOPRESSIN ACETATE [Suspect]
     Route: 060
     Dates: start: 20090904, end: 20090904

REACTIONS (2)
  - HALLUCINATION [None]
  - PANIC REACTION [None]
